FAERS Safety Report 10431248 (Version 2)
Quarter: 2015Q3

REPORT INFORMATION
  Report Type: Spontaneous
  Country: US (occurrence: US)
  Receive Date: 20140904
  Receipt Date: 20150710
  Transmission Date: 20151125
  Serious: Yes (Death, Hospitalization)
  Sender: FDA-Public Use
  Company Number: PHHY2014US109883

PATIENT
  Age: 35 Year
  Sex: Female
  Weight: 82.5 kg

DRUGS (1)
  1. CITALOPRAM [Suspect]
     Active Substance: CITALOPRAM HYDROBROMIDE
     Indication: DEPRESSION
     Route: 065

REACTIONS (11)
  - Haemodynamic instability [Unknown]
  - Cardiac arrest [Unknown]
  - Seizure [Unknown]
  - Retching [Unknown]
  - Pyrexia [Unknown]
  - Intentional overdose [Fatal]
  - Torsade de pointes [Unknown]
  - Hypertonia [Unknown]
  - Cough [Unknown]
  - Pulseless electrical activity [Unknown]
  - Tachycardia [Unknown]
